FAERS Safety Report 25161277 (Version 1)
Quarter: 2025Q2

REPORT INFORMATION
  Report Type: Spontaneous
  Country: US (occurrence: US)
  Receive Date: 20250404
  Receipt Date: 20250404
  Transmission Date: 20250717
  Serious: No
  Sender: PFIZER
  Company Number: US-PFIZER INC-202500070404

PATIENT
  Age: 47 Year
  Sex: Female

DRUGS (5)
  1. XELJANZ XR [Suspect]
     Active Substance: TOFACITINIB CITRATE
     Dosage: 11 MG, DAILY
     Route: 048
  2. AMLODIPINE BESYLATE [Concomitant]
     Active Substance: AMLODIPINE BESYLATE
  3. BIOTIN [Concomitant]
     Active Substance: BIOTIN
  4. GINGER ROOT [ZINGIBER OFFICINALE RHIZOME] [Concomitant]
  5. OREGANO LEAF OIL [Concomitant]
     Active Substance: OREGANO LEAF OIL

REACTIONS (1)
  - Pain [Not Recovered/Not Resolved]
